FAERS Safety Report 8486776-5 (Version None)
Quarter: 2012Q3

REPORT INFORMATION
  Report Type: 
  Country: None (occurrence: None)
  Receive Date: 20120704
  Receipt Date: 20120629
  Transmission Date: 20120928
  Serious: Yes (Hospitalization)
  Sender: FDA-Public Use
  Company Number: US-BIOGENIDEC-2012BI023420

PATIENT
  Age: 40 Year
  Sex: Female

DRUGS (3)
  1. AVONEX [Suspect]
     Indication: MULTIPLE SCLEROSIS
     Route: 030
     Dates: start: 20010601, end: 20030801
  2. AVONEX [Suspect]
     Route: 030
     Dates: start: 20090401
  3. AVONEX [Suspect]
     Route: 030
     Dates: start: 20030801

REACTIONS (1)
  - OBESITY SURGERY [None]
